FAERS Safety Report 16862101 (Version 2)
Quarter: 2019Q4

REPORT INFORMATION
  Report Type: Spontaneous
  Country: US (occurrence: US)
  Receive Date: 20190927
  Receipt Date: 20191004
  Transmission Date: 20200122
  Serious: No
  Sender: FDA-Public Use
  Company Number: US-FRESENIUS KABI-FK201910508

PATIENT
  Age: 34 Year
  Sex: Female
  Weight: 80.74 kg

DRUGS (3)
  1. ROPIVACAINHYDROCHLORID KABI 2 MG / ML [Suspect]
     Active Substance: ROPIVACAINE HYDROCHLORIDE
     Indication: LABOUR PAIN
     Dosage: 200MG/100ML
     Route: 008
  2. FENTANYL. [Suspect]
     Active Substance: FENTANYL
     Indication: LABOUR PAIN
     Dosage: 200 MICROGRAM
     Route: 008
  3. EPINEPHRINE/BUPIVACAINE [Concomitant]
     Indication: LABOUR PAIN
     Route: 008

REACTIONS (2)
  - Drug ineffective [Unknown]
  - Exposure during pregnancy [Unknown]

NARRATIVE: CASE EVENT DATE: 20190919
